FAERS Safety Report 5752093-7 (Version None)
Quarter: 2008Q2

REPORT INFORMATION
  Report Type: 
  Country: None (occurrence: None)
  Receive Date: 20080529
  Receipt Date: 20080519
  Transmission Date: 20081010
  Serious: Yes (Hospitalization)
  Sender: FDA-Public Use
  Company Number: GB-TEVA-171857ISR

PATIENT
  Age: 69 Year
  Sex: Male

DRUGS (4)
  1. CLARITHROMYCIN [Suspect]
     Indication: INFECTION
  2. RIFAMPICIN [Interacting]
     Indication: INFECTION
  3. ETHAMBUTOL HYDROCHLORIDE [Interacting]
     Indication: INFECTION
  4. CLOPIDOGREL [Interacting]
     Indication: INFECTION

REACTIONS (2)
  - DRUG INTERACTION [None]
  - THROMBOSIS [None]
